FAERS Safety Report 18504814 (Version 2)
Quarter: 2020Q4

REPORT INFORMATION
  Report Type: Spontaneous
  Country: DE (occurrence: DE)
  Receive Date: 20201115
  Receipt Date: 20201204
  Transmission Date: 20210114
  Serious: Yes (Other)
  Sender: FDA-Public Use
  Company Number: DE-009507513-2011DEU006307

PATIENT
  Sex: Female

DRUGS (2)
  1. IMPLANON NXT [Suspect]
     Active Substance: ETONOGESTREL
     Dosage: SECOND ROD (1 DOSAGE FORM), LEFT HAND SIDE
     Route: 059
     Dates: start: 2017, end: 202011
  2. IMPLANON NXT [Suspect]
     Active Substance: ETONOGESTREL
     Dosage: FIRST ROD (1 DOSAGE FORM)
     Route: 059
     Dates: start: 2014, end: 2017

REACTIONS (13)
  - Histamine intolerance [Recovering/Resolving]
  - Skin hypertrophy [Recovering/Resolving]
  - Illness [Recovering/Resolving]
  - Orbital myositis [Recovering/Resolving]
  - Subcutaneous abscess [Recovering/Resolving]
  - Myalgia [Recovering/Resolving]
  - Nervous system disorder [Recovering/Resolving]
  - Dandruff [Recovering/Resolving]
  - Angioedema [Recovering/Resolving]
  - Migraine [Recovering/Resolving]
  - Vaginal haemorrhage [Recovering/Resolving]
  - Anaphylactic shock [Recovering/Resolving]
  - Neuralgia [Recovering/Resolving]

NARRATIVE: CASE EVENT DATE: 201806
